FAERS Safety Report 7215138-3 (Version None)
Quarter: 2011Q1

REPORT INFORMATION
  Report Type: 
  Country: None (occurrence: None)
  Receive Date: 20110107
  Receipt Date: 20100908
  Transmission Date: 20110831
  Serious: No
  Sender: FDA-Public Use
  Company Number: A0880302A

PATIENT
  Age: 64 Year
  Sex: Female

DRUGS (5)
  1. THYROID [Concomitant]
  2. PROTON PUMP INHIBITOR [Concomitant]
  3. LOVAZA [Suspect]
     Dosage: 3CAP PER DAY
     Route: 048
     Dates: start: 20080101
  4. OXYCONTIN [Concomitant]
  5. FLAXSEED [Concomitant]

REACTIONS (1)
  - NAUSEA [None]
